FAERS Safety Report 9179041 (Version 1)
Quarter: 2013Q1

REPORT INFORMATION
  Report Type: Spontaneous
  Country: US (occurrence: US)
  Receive Date: 20130321
  Receipt Date: 20130321
  Transmission Date: 20140127
  Serious: No
  Sender: FDA-Public Use
  Company Number: US-BAYER-2013-033882

PATIENT
  Sex: Female

DRUGS (3)
  1. BETASERON [Suspect]
     Indication: MULTIPLE SCLEROSIS
     Dosage: 0.25 MG, QOD
     Route: 058
  2. TYLENOL [PARACETAMOL] [Concomitant]
  3. DEPAKOTE [Concomitant]

REACTIONS (4)
  - Influenza like illness [None]
  - Pyrexia [None]
  - Headache [None]
  - Depression [None]
